FAERS Safety Report 6666195-4 (Version None)
Quarter: 2010Q1

REPORT INFORMATION
  Report Type: 
  Country: None (occurrence: None)
  Receive Date: 20100330
  Receipt Date: 20100317
  Transmission Date: 20100710
  Serious: Yes (Other)
  Sender: FDA-Public Use
  Company Number: 2010AP000545

PATIENT
  Age: 9 Year
  Sex: Male

DRUGS (9)
  1. CYCLOSPORINE [Suspect]
     Indication: IMMUNOSUPPRESSION
  2. VORICONAZOLE [Suspect]
     Dosage: 150 MG; BID
  3. ZENAPAX [Suspect]
     Indication: IMMUNOSUPPRESSION
  4. PREDNISONE [Suspect]
     Indication: IMMUNOSUPPRESSION
     Dosage: 2.5 MG; QOD
  5. THALIDOMIDE [Suspect]
     Indication: IMMUNOSUPPRESSION
     Dosage: 100 MG; QD
  6. TACROLIMUS [Suspect]
     Indication: IMMUNOSUPPRESSION
     Dosage: TOP
     Route: 061
  7. ACYCLOVIR [Concomitant]
  8. AMLODIPINE [Concomitant]
  9. SULFAMETHOXAZOLE AND TRIMETHOPRIM [Concomitant]

REACTIONS (4)
  - ACTINIC KERATOSIS [None]
  - GRAFT VERSUS HOST DISEASE [None]
  - PHOTOSENSITIVITY REACTION [None]
  - SQUAMOUS CELL CARCINOMA [None]
